FAERS Safety Report 8516607-6 (Version None)
Quarter: 2012Q3

REPORT INFORMATION
  Report Type: 
  Country: None (occurrence: None)
  Receive Date: 20120718
  Receipt Date: 20120628
  Transmission Date: 20120928
  Serious: Yes (Hospitalization)
  Sender: FDA-Public Use
  Company Number: FR-009507513-1207FRA001557

PATIENT

DRUGS (11)
  1. BUDESONIDE [Suspect]
     Indication: ASTHMA
     Dosage: 400 MICROGRAM, BID
     Route: 048
     Dates: start: 20111125, end: 20120525
  2. KETOCONAZOLE [Concomitant]
     Route: 061
  3. VALSARTAN [Concomitant]
  4. SINGULAIR [Suspect]
     Indication: ASTHMA
     Dosage: 10 MG, QD
     Route: 048
     Dates: start: 20110415, end: 20120525
  5. TRIDESONIT [Concomitant]
  6. VENTOLINE (ALBUTEROL SULFATE) [Concomitant]
  7. FERROUS SULFATE TAB [Concomitant]
  8. PANTOPRAZOLE SODIUM [Suspect]
     Dosage: 40 MG, QD
     Route: 048
     Dates: start: 20110415, end: 20120525
  9. FORADIL [Suspect]
     Indication: ASTHMA
     Dosage: 12 MICROGRAM, BID
     Route: 055
     Dates: start: 20111125
  10. FUROSEMIDE [Suspect]
     Dosage: UNK
     Route: 048
  11. FLECAINIDE ACETATE [Concomitant]

REACTIONS (4)
  - RASH ERYTHEMATOUS [None]
  - RASH PAPULAR [None]
  - RASH GENERALISED [None]
  - DERMATITIS BULLOUS [None]
